FAERS Safety Report 10749774 (Version 3)
Quarter: 2015Q1

REPORT INFORMATION
  Report Type: Spontaneous
  Country: US (occurrence: US)
  Receive Date: 20150129
  Receipt Date: 20150324
  Transmission Date: 20150721
  Serious: Yes (Death)
  Sender: FDA-Public Use
  Company Number: US-GLAXOSMITHKLINE-US2015GSK010541

PATIENT
  Sex: Male
  Weight: 99.77 kg

DRUGS (23)
  1. NAPROXEN. [Concomitant]
     Active Substance: NAPROXEN
  2. CHLORPROMAZINE [Concomitant]
     Active Substance: CHLORPROMAZINE
  3. PROAIR HFA [Concomitant]
     Active Substance: ALBUTEROL SULFATE
  4. ALPRAZOLAM. [Concomitant]
     Active Substance: ALPRAZOLAM
  5. CIPROFLOXACIN. [Concomitant]
     Active Substance: CIPROFLOXACIN
  6. ZOLPIDEM [Concomitant]
     Active Substance: ZOLPIDEM\ZOLPIDEM TARTRATE
  7. TRAZODONE [Concomitant]
     Active Substance: TRAZODONE HYDROCHLORIDE
  8. SULFAMETHOXAZOLE [Concomitant]
     Active Substance: SULFAMETHOXAZOLE
  9. HYOSCYAMINE [Concomitant]
     Active Substance: HYOSCYAMINE
  10. FENTANYL. [Concomitant]
     Active Substance: FENTANYL
  11. TAFINLAR [Suspect]
     Active Substance: DABRAFENIB MESYLATE
     Indication: MALIGNANT MELANOMA
     Dosage: 150 MG, BID
     Route: 048
     Dates: start: 20141217
  12. MEKINIST [Suspect]
     Active Substance: TRAMETINIB DIMETHYL SULFOXIDE
     Indication: MALIGNANT MELANOMA
     Dosage: 2 MG, QD
     Dates: start: 20141217
  13. BACTRIM [Concomitant]
     Active Substance: SULFAMETHOXAZOLE\TRIMETHOPRIM
  14. PREDNISONE. [Concomitant]
     Active Substance: PREDNISONE
  15. OXYCODONE [Concomitant]
     Active Substance: OXYCODONE
  16. QVAR [Concomitant]
     Active Substance: BECLOMETHASONE DIPROPIONATE
  17. TYLENOL [Concomitant]
     Active Substance: ACETAMINOPHEN
  18. HYDROCODONE [Concomitant]
     Active Substance: HYDROCODONE
  19. SENNA [Concomitant]
     Active Substance: SENNA LEAF\SENNOSIDES\SENNOSIDES A AND B
  20. OXYCONTIN [Concomitant]
     Active Substance: OXYCODONE HYDROCHLORIDE
  21. PROMETHAZINE-CODEINE [Concomitant]
     Active Substance: CODEINE PHOSPHATE\PROMETHAZINE
  22. ELIQUIS [Concomitant]
     Active Substance: APIXABAN
  23. GABAPENTIN. [Concomitant]
     Active Substance: GABAPENTIN

REACTIONS (4)
  - Pyrexia [Unknown]
  - Disease progression [Fatal]
  - Tremor [Unknown]
  - Cough [Unknown]
